FAERS Safety Report 17318172 (Version 1)
Quarter: 2020Q1

REPORT INFORMATION
  Report Type: Spontaneous
  Country: FR (occurrence: FR)
  Receive Date: 20200124
  Receipt Date: 20200124
  Transmission Date: 20200409
  Serious: Yes (Other)
  Sender: FDA-Public Use
  Company Number: FR-MYLANLABS-2020M1007570

PATIENT
  Age: 35 Year
  Sex: Female

DRUGS (16)
  1. VINCRISTINE [Suspect]
     Active Substance: VINCRISTINE
     Indication: B-CELL TYPE ACUTE LEUKAEMIA
     Dosage: 1.4 MG/M2 UP TO MAXIMUM 2MG (D1)
     Route: 065
  2. HYDROCORTISONE. [Concomitant]
     Active Substance: HYDROCORTISONE
     Dosage: 40 MILLIGRAM
     Route: 037
  3. CYTARABINE. [Concomitant]
     Active Substance: CYTARABINE
     Dosage: 40 MILLIGRAM
     Route: 037
  4. CYCLOPHOSPHAMIDE. [Suspect]
     Active Substance: CYCLOPHOSPHAMIDE
     Indication: B-CELL TYPE ACUTE LEUKAEMIA
     Dosage: 750 MILLIGRAM/SQ. METER (D1)
     Route: 065
  5. RITUXIMAB. [Suspect]
     Active Substance: RITUXIMAB
     Indication: B-CELL TYPE ACUTE LEUKAEMIA
     Dosage: 375 MILLIGRAM/SQ. METER D1
     Route: 041
  6. HEPARIN [Concomitant]
     Active Substance: HEPARIN SODIUM
     Dosage: UNK
  7. VITAMIN B9 [Concomitant]
     Dosage: 1 DOSAGE FORM, QOD
     Route: 042
  8. METHOTREXATE. [Concomitant]
     Active Substance: METHOTREXATE
     Dosage: 15 MILLIGRAM
     Route: 037
  9. ROMIPLOSTIM [Concomitant]
     Active Substance: ROMIPLOSTIM
     Dosage: 1000 MICROGRAM, QW
     Route: 058
  10. DARBEPOETIN ALFA [Concomitant]
     Active Substance: DARBEPOETIN ALFA
     Dosage: 1000 MICROGRAM, QW
     Route: 058
  11. PREDNISONE. [Suspect]
     Active Substance: PREDNISONE
     Indication: B-CELL TYPE ACUTE LEUKAEMIA
     Dosage: 60 MILLIGRAM/SQ. METER PROPHASE
     Route: 065
  12. PREDNISONE. [Suspect]
     Active Substance: PREDNISONE
     Dosage: 40 MILLIGRAM/SQ. METER (D1 TO D5 )
     Route: 065
  13. DOXORUBICIN [Suspect]
     Active Substance: DOXORUBICIN
     Indication: B-CELL TYPE ACUTE LEUKAEMIA
     Dosage: 50 MILLIGRAM/SQ. METER (D1)
     Route: 065
  14. L-ASPARAGINASE [Concomitant]
     Active Substance: ASPARAGINASE
     Indication: B-CELL TYPE ACUTE LEUKAEMIA
     Dosage: 6000 UI/M2 AT DAYS 8, 10, 12, 16, 18, 20, 22 AND 24
     Route: 065
  15. FILGRASTIM [Concomitant]
     Active Substance: FILGRASTIM
     Dosage: UNK
     Route: 042
  16. IRON [Concomitant]
     Active Substance: IRON
     Dosage: 1000 MILLIGRAM
     Route: 042

REACTIONS (5)
  - Headache [Unknown]
  - Deep vein thrombosis [Unknown]
  - Escherichia bacteraemia [Unknown]
  - Dyspnoea [Unknown]
  - Anaemia [Unknown]
